FAERS Safety Report 6841516-8 (Version None)
Quarter: 2010Q3

REPORT INFORMATION
  Report Type: 
  Country: None (occurrence: None)
  Receive Date: 20100714
  Receipt Date: 20070809
  Transmission Date: 20110219
  Serious: No
  Sender: FDA-Public Use
  Company Number: US-PFIZER INC-2007058027

PATIENT
  Sex: Female
  Weight: 79.09 kg

DRUGS (4)
  1. CHANTIX [Suspect]
     Indication: SMOKING CESSATION THERAPY
     Dates: start: 20070623
  2. PHENAZOPYRIDINE HCL TAB [Concomitant]
     Indication: KIDNEY INFECTION
     Dates: start: 20070628
  3. MAXZIDE [Concomitant]
  4. NEXIUM [Concomitant]

REACTIONS (1)
  - DYSURIA [None]
